FAERS Safety Report 4317302-X (Version None)
Quarter: 2004Q1

REPORT INFORMATION
  Report Type: 
  Country: None (occurrence: None)
  Receive Date: 20040304
  Receipt Date: 20040212
  Transmission Date: 20041129
  Serious: No
  Sender: FDA-Public Use
  Company Number: 20029866-C598250-2

PATIENT
  Sex: Male
  Weight: 113.3993 kg

DRUGS (2)
  1. ANTICOAGULANT CITRATE DEXTROSE SOLUTION A [Suspect]
     Indication: APHERESIS
     Dosage: USED IN CONJUNCTION WITH APHERESIS DEVICES
     Dates: start: 20040110
  2. COBE TRIMA APHERESIS DEVICE [Concomitant]

REACTIONS (5)
  - DIARRHOEA [None]
  - LOSS OF CONSCIOUSNESS [None]
  - MUSCLE CRAMP [None]
  - NAUSEA [None]
  - VOMITING [None]
